FAERS Safety Report 6685770-4 (Version None)
Quarter: 2010Q2

REPORT INFORMATION
  Report Type: 
  Country: None (occurrence: None)
  Receive Date: 20100415
  Receipt Date: 20100415
  Transmission Date: 20101027
  Serious: Yes (Life-Threatening)
  Sender: FDA-Public Use
  Company Number: None

PATIENT
  Age: 74 Year
  Sex: Female

DRUGS (5)
  1. LISINOPRIL [Suspect]
     Indication: HYPERTENSION
     Dosage: 10MG ONCE A DAY PO
     Route: 048
     Dates: start: 20070305, end: 20080702
  2. NIFEDIPINE [Concomitant]
  3. HYDROCHLOROTHIAZIDE [Concomitant]
  4. SIMVASTATIN [Concomitant]
  5. CALCIUM/VITAMIN D [Concomitant]

REACTIONS (2)
  - FACE OEDEMA [None]
  - SWOLLEN TONGUE [None]
